FAERS Safety Report 8620561-6 (Version None)
Quarter: 2012Q3

REPORT INFORMATION
  Report Type: 
  Country: None (occurrence: None)
  Receive Date: 20120824
  Receipt Date: 20120813
  Transmission Date: 20120928
  Serious: Yes (Death)
  Sender: FDA-Public Use
  Company Number: ES-ACTELION-A-CH2012-70165

PATIENT
  Age: 8 Year
  Sex: Female

DRUGS (1)
  1. ZAVESCA [Suspect]
     Indication: NIEMANN-PICK DISEASE
     Dosage: 400 MG, QD
     Route: 048

REACTIONS (8)
  - OPHTHALMOPLEGIA [None]
  - DYSPHAGIA [None]
  - APHASIA [None]
  - ATAXIA [None]
  - NEUROLOGICAL DECOMPENSATION [None]
  - RESPIRATORY TRACT INFECTION [None]
  - DIARRHOEA [None]
  - ABASIA [None]
